FAERS Safety Report 9633826 (Version 3)
Quarter: 2013Q4

REPORT INFORMATION
  Report Type: Spontaneous
  Country: US (occurrence: US)
  Receive Date: 20131021
  Receipt Date: 20131106
  Transmission Date: 20140711
  Serious: No
  Sender: FDA-Public Use
  Company Number: US-TEVA-438922USA

PATIENT
  Age: 29 Year
  Sex: Female
  Weight: 47.22 kg

DRUGS (1)
  1. PARAGARD 380A [Suspect]
     Indication: CONTRACEPTION
     Route: 015
     Dates: start: 20130828, end: 20130828

REACTIONS (2)
  - Pelvic pain [Recovered/Resolved]
  - Complication of device insertion [Unknown]
